FAERS Safety Report 5691074-9 (Version None)
Quarter: 2008Q2

REPORT INFORMATION
  Report Type: 
  Country: None (occurrence: None)
  Receive Date: 20080401
  Receipt Date: 20080328
  Transmission Date: 20081010
  Serious: Yes (Hospitalization, Other)
  Sender: FDA-Public Use
  Company Number: FR-GENENTECH-254511

PATIENT
  Sex: Male

DRUGS (12)
  1. ACTIVASE [Suspect]
     Indication: CEREBROVASCULAR ACCIDENT
     Dosage: 6.5 MG, SINGLE
     Route: 040
     Dates: start: 20071214
  2. ACTIVASE [Suspect]
     Dosage: 61 MG, SINGLE
     Route: 042
     Dates: start: 20071214
  3. LOXEN [Concomitant]
     Indication: CEREBROVASCULAR ACCIDENT
     Dosage: 1 MG, UNK
     Route: 042
     Dates: start: 20071204, end: 20071215
  4. INIPOMP [Concomitant]
     Indication: CEREBROVASCULAR ACCIDENT
     Dosage: 40 MG, UNK
     Route: 042
     Dates: start: 20071204, end: 20071216
  5. TRANXENE [Concomitant]
     Indication: CEREBROVASCULAR ACCIDENT
     Dosage: 10 MG, UNK
     Route: 042
     Dates: start: 20071215
  6. DETENSIEL [Concomitant]
     Indication: CEREBROVASCULAR ACCIDENT
     Dosage: 10 MG, UNK
     Route: 048
     Dates: start: 20071215
  7. STAGID [Concomitant]
     Indication: DRUG USE FOR UNKNOWN INDICATION
  8. COTAREG [Concomitant]
     Indication: DRUG USE FOR UNKNOWN INDICATION
  9. ALLOPURINOL [Concomitant]
     Indication: DRUG USE FOR UNKNOWN INDICATION
  10. ATORVASTATIN CALCIUM [Concomitant]
     Indication: DRUG USE FOR UNKNOWN INDICATION
  11. OMEPRAZOLE [Concomitant]
     Indication: DRUG USE FOR UNKNOWN INDICATION
  12. CHINESE HERBS (UNK INGREDIENTS) [Concomitant]
     Indication: DRUG USE FOR UNKNOWN INDICATION

REACTIONS (3)
  - CANDIDIASIS [None]
  - DERMATITIS BULLOUS [None]
  - STAPHYLOCOCCAL INFECTION [None]
